FAERS Safety Report 20633008 (Version 1)
Quarter: 2022Q1

REPORT INFORMATION
  Report Type: Spontaneous
  Country: FR (occurrence: FR)
  Receive Date: 20220324
  Receipt Date: 20220324
  Transmission Date: 20220424
  Serious: Yes (Other)
  Sender: FDA-Public Use
  Company Number: None

PATIENT
  Age: 31 Year
  Sex: Female

DRUGS (4)
  1. LYRICA [Suspect]
     Active Substance: PREGABALIN
     Dosage: UNTIL 900 MG, IN ONE SINGLE INTAKE
     Route: 048
  2. COCAINE [Suspect]
     Active Substance: COCAINE
     Route: 042
  3. SUBUTEX [Suspect]
     Active Substance: BUPRENORPHINE HYDROCHLORIDE
     Dosage: 24 MG, DAILY
     Route: 045
  4. OXAZEPAM [Suspect]
     Active Substance: OXAZEPAM
     Dosage: 5 DF, DAILY (UNTIL 3 TABLETS IN ONE SINGLE INTAKE)

REACTIONS (2)
  - Drug dependence [Recovering/Resolving]
  - Overdose [Unknown]
